FAERS Safety Report 20756911 (Version 1)
Quarter: 2022Q2

REPORT INFORMATION
  Report Type: Spontaneous
  Country: US (occurrence: None)
  Receive Date: 20220426
  Receipt Date: 20220426
  Transmission Date: 20220721
  Serious: Yes (Death)
  Sender: FDA-Public Use
  Company Number: None

PATIENT
  Age: 36 Year
  Sex: Female

DRUGS (8)
  1. MAGNESIUM OXIDE [Suspect]
     Active Substance: MAGNESIUM OXIDE
     Indication: Migraine prophylaxis
     Dosage: FREQUENCY : DAILY;?
     Route: 048
     Dates: start: 20220119
  2. MAGNESIUM OXIDE [Suspect]
     Active Substance: MAGNESIUM OXIDE
     Indication: Migraine
  3. PYRIDOXINE [Suspect]
     Active Substance: PYRIDOXINE
     Indication: Migraine prophylaxis
     Dosage: FREQUENCY : DAILY;?
     Route: 048
     Dates: start: 20220119
  4. DIAMOX SEQUELS [Suspect]
     Active Substance: ACETAZOLAMIDE
     Indication: Migraine prophylaxis
     Route: 048
  5. TYLENOL EXTRA STRENGTH [Suspect]
     Active Substance: ACETAMINOPHEN
     Indication: Migraine
     Dosage: FREQUENCY: PRN
     Route: 048
  6. TYLENOL [Suspect]
     Active Substance: ACETAMINOPHEN
     Indication: Migraine
     Route: 048
  7. TYLENOL PM [Suspect]
     Active Substance: ACETAMINOPHEN\DIPHENHYDRAMINE
     Indication: Migraine
     Route: 048
  8. ASPIRIN [Concomitant]
     Active Substance: ASPIRIN

REACTIONS (3)
  - Death neonatal [None]
  - Maternal exposure during pregnancy [None]
  - Foetal exposure during pregnancy [None]

NARRATIVE: CASE EVENT DATE: 20220314
